FAERS Safety Report 20532974 (Version 1)
Quarter: 2022Q1

REPORT INFORMATION
  Report Type: Report from Study
  Country: CA (occurrence: CA)
  Receive Date: 20220301
  Receipt Date: 20220301
  Transmission Date: 20220423
  Serious: Yes (Other)
  Sender: FDA-Public Use
  Company Number: CA-AstraZeneca-2022A073241

PATIENT
  Age: 53 Year
  Sex: Female

DRUGS (5)
  1. TRASTUZUMAB DERUXTECAN [Suspect]
     Active Substance: TRASTUZUMAB DERUXTECAN
     Indication: HER2 positive breast cancer
     Dosage: 264 MG, ONCE EVERY 3 WK
     Route: 042
     Dates: start: 20220211
  2. ONDANSETRON [Concomitant]
     Active Substance: ONDANSETRON
  3. OLANZAPINE [Concomitant]
     Active Substance: OLANZAPINE
  4. DEXAMETHASONE [Concomitant]
     Active Substance: DEXAMETHASONE
  5. PREGABALIN [Concomitant]
     Active Substance: PREGABALIN

REACTIONS (5)
  - Pruritus [Unknown]
  - Ocular icterus [Unknown]
  - Skin discolouration [Unknown]
  - Chromaturia [Unknown]
  - Dry skin [Unknown]

NARRATIVE: CASE EVENT DATE: 20220213
